FAERS Safety Report 7726785-4 (Version None)
Quarter: 2011Q3

REPORT INFORMATION
  Report Type: 
  Country: None (occurrence: None)
  Receive Date: 20110902
  Receipt Date: 20110826
  Transmission Date: 20111222
  Serious: Yes (Death)
  Sender: FDA-Public Use
  Company Number: US-GLAXOSMITHKLINE-A0943053A

PATIENT
  Age: 75 Year
  Sex: Male

DRUGS (1)
  1. PROMACTA [Suspect]
     Indication: AUTOIMMUNE THROMBOCYTOPENIA

REACTIONS (1)
  - DEATH [None]
